FAERS Safety Report 20879900 (Version 1)
Quarter: 2022Q2

REPORT INFORMATION
  Report Type: Spontaneous
  Country: US (occurrence: US)
  Receive Date: 20220526
  Receipt Date: 20220526
  Transmission Date: 20220721
  Serious: Yes (Other)
  Sender: FDA-Public Use
  Company Number: US-PURDUE-USA-2022-0293993

PATIENT
  Sex: Male
  Weight: 74.83 kg

DRUGS (1)
  1. COLACE [Suspect]
     Active Substance: DOCUSATE SODIUM
     Indication: Product used for unknown indication
     Dosage: 100 MG, PRN
     Route: 048
     Dates: start: 2021

REACTIONS (5)
  - Choking [Unknown]
  - Throat irritation [Not Recovered/Not Resolved]
  - Vomiting [Not Recovered/Not Resolved]
  - Anxiety [Not Recovered/Not Resolved]
  - Product taste abnormal [Unknown]
